FAERS Safety Report 7061749-8 (Version None)
Quarter: 2010Q4

REPORT INFORMATION
  Report Type: 
  Country: None (occurrence: None)
  Receive Date: 20101026
  Receipt Date: 20091120
  Transmission Date: 20110411
  Serious: No
  Sender: FDA-Public Use
  Company Number: US-TYCO HEALTHCARE/MALLINCKRODT-T200902208

PATIENT
  Sex: Female
  Weight: 99.773 kg

DRUGS (1)
  1. THALLOUS CHLORIDE TL-201 [Suspect]
     Indication: SCAN MYOCARDIAL PERFUSION
     Dosage: 4.3 MCI, SINGLE
     Route: 042
     Dates: start: 20091120, end: 20091120

REACTIONS (1)
  - BURNING SENSATION [None]
